FAERS Safety Report 13914503 (Version 1)
Quarter: 2017Q3

REPORT INFORMATION
  Report Type: Spontaneous
  Country: US (occurrence: US)
  Receive Date: 20170828
  Receipt Date: 20170828
  Transmission Date: 20171127
  Serious: No
  Sender: FDA-Public Use
  Company Number: US-009507513-1708USA010729

PATIENT
  Age: 57 Year
  Sex: Female

DRUGS (5)
  1. TICE BCG [Suspect]
     Active Substance: BACILLUS CALMETTE-GUERIN SUBSTRAIN TICE LIVE ANTIGEN
     Indication: BLADDER CANCER
     Dosage: UNK
     Route: 043
     Dates: start: 20140606
  2. SODIUM CHLORIDE. [Suspect]
     Active Substance: SODIUM CHLORIDE
  3. TICE BCG [Suspect]
     Active Substance: BACILLUS CALMETTE-GUERIN SUBSTRAIN TICE LIVE ANTIGEN
     Dosage: UNK
     Route: 043
     Dates: start: 20170324
  4. PYRIDIUM [Concomitant]
     Active Substance: PHENAZOPYRIDINE
     Dosage: UNK
  5. HYDROMORPHONE [Concomitant]
     Active Substance: HYDROMORPHONE
     Dosage: UNK

REACTIONS (3)
  - Discomfort [Recovering/Resolving]
  - Dysuria [Recovering/Resolving]
  - Pollakiuria [Recovering/Resolving]

NARRATIVE: CASE EVENT DATE: 20170403
